FAERS Safety Report 21243145 (Version 1)
Quarter: 2022Q3

REPORT INFORMATION
  Report Type: Spontaneous
  Country: DK (occurrence: DK)
  Receive Date: 20220823
  Receipt Date: 20220823
  Transmission Date: 20221027
  Serious: Yes (Other)
  Sender: FDA-Public Use
  Company Number: None

PATIENT
  Age: 32 Year
  Sex: Female

DRUGS (1)
  1. CYTOTEC [Suspect]
     Active Substance: MISOPROSTOL
     Indication: Abortion induced
     Dosage: 2 MG, 1X/DAY
     Route: 048
     Dates: start: 20201026, end: 20201028

REACTIONS (6)
  - Amniotic cavity infection [Recovered/Resolved]
  - Uterine injury [Unknown]
  - Uterine rupture [Recovered/Resolved with Sequelae]
  - Pyrexia [Recovered/Resolved]
  - Uterine pain [Recovered/Resolved]
  - Off label use [Unknown]

NARRATIVE: CASE EVENT DATE: 20201001
